FAERS Safety Report 23317095 (Version 2)
Quarter: 2025Q3

REPORT INFORMATION
  Report Type: Spontaneous
  Country: US (occurrence: US)
  Receive Date: 20231219
  Receipt Date: 20250817
  Transmission Date: 20251021
  Serious: No
  Sender: ROCHE
  Company Number: US-ROCHE-3361666

PATIENT
  Age: 47 Year
  Sex: Male

DRUGS (2)
  1. HEMLIBRA [Suspect]
     Active Substance: EMICIZUMAB-KXWH
     Indication: Factor VIII deficiency
     Dosage: STRENGTH: 150 MG/ML
     Route: 058
     Dates: start: 201801
  2. HEMLIBRA [Suspect]
     Active Substance: EMICIZUMAB-KXWH
     Dosage: STRENGTH: 300 MG/ 2ML
     Route: 058
     Dates: start: 201801

REACTIONS (4)
  - Contusion [Unknown]
  - Limb injury [Unknown]
  - Contusion [Not Recovered/Not Resolved]
  - Haematoma [Unknown]

NARRATIVE: CASE EVENT DATE: 20230401
